FAERS Safety Report 23145236 (Version 2)
Quarter: 2023Q4

REPORT INFORMATION
  Report Type: Spontaneous
  Country: BR (occurrence: BR)
  Receive Date: 20231103
  Receipt Date: 20231129
  Transmission Date: 20240110
  Serious: Yes (Other)
  Sender: FDA-Public Use
  Company Number: BR-GUERBET / GUERBET PRODUTOS RADIOLOGICOS LTDA-BR-20230164

PATIENT
  Age: 33 Year
  Sex: Female

DRUGS (1)
  1. DOTAREM [Suspect]
     Active Substance: GADOTERATE MEGLUMINE
     Indication: Product used for unknown indication
     Route: 042
     Dates: start: 20231018, end: 20231018

REACTIONS (1)
  - Respiratory disorder [Recovered/Resolved]

NARRATIVE: CASE EVENT DATE: 20231018
